FAERS Safety Report 24432600 (Version 2)
Quarter: 2024Q4

REPORT INFORMATION
  Report Type: Report from Study
  Country: CA (occurrence: CA)
  Receive Date: 20241014
  Receipt Date: 20241112
  Transmission Date: 20250115
  Serious: Yes (Hospitalization, Other)
  Sender: JOHNSON AND JOHNSON
  Company Number: CA-JNJFOC-20230822944

PATIENT
  Age: 41 Year
  Sex: Female

DRUGS (10)
  1. MACITENTAN [Suspect]
     Active Substance: MACITENTAN
     Indication: Pulmonary hypertension
     Route: 048
     Dates: start: 20210327
  2. MACITENTAN [Suspect]
     Active Substance: MACITENTAN
     Indication: Pulmonary hypertension
  3. EPOPROSTENOL SODIUM [Suspect]
     Active Substance: EPOPROSTENOL SODIUM
     Indication: Pulmonary hypertension
     Route: 042
     Dates: start: 20210414
  4. EPOPROSTENOL SODIUM [Suspect]
     Active Substance: EPOPROSTENOL SODIUM
     Indication: Pulmonary hypertension
     Route: 042
     Dates: start: 20210414
  5. EPOPROSTENOL SODIUM [Suspect]
     Active Substance: EPOPROSTENOL SODIUM
     Route: 042
     Dates: start: 20210414
  6. WARFARIN [Concomitant]
     Active Substance: WARFARIN
  7. FUROSEMIDE [Concomitant]
     Active Substance: FUROSEMIDE
  8. TYLENOL [Concomitant]
     Active Substance: ACETAMINOPHEN
  9. IMODIUM [Concomitant]
     Active Substance: LOPERAMIDE HYDROCHLORIDE
  10. ADCIRCA [Concomitant]
     Active Substance: TADALAFIL

REACTIONS (14)
  - Pneumonia [Unknown]
  - Endocarditis [Unknown]
  - Surgery [Unknown]
  - Dyspnoea [Unknown]
  - Musculoskeletal pain [Unknown]
  - Catheter site infection [Recovering/Resolving]
  - Cardiac disorder [Not Recovered/Not Resolved]
  - Nasopharyngitis [Not Recovered/Not Resolved]
  - Catheter site erythema [Unknown]
  - Catheter site pain [Unknown]
  - Swelling [Not Recovered/Not Resolved]
  - Catheter site irritation [Unknown]
  - Dyspnoea [Unknown]
  - Staphylococcal infection [Unknown]

NARRATIVE: CASE EVENT DATE: 20231101
